FAERS Safety Report 7142835-0 (Version None)
Quarter: 2010Q4

REPORT INFORMATION
  Report Type: 
  Country: None (occurrence: None)
  Receive Date: 20101207
  Receipt Date: 20101130
  Transmission Date: 20110411
  Serious: Yes (Other)
  Sender: FDA-Public Use
  Company Number: JP-PFIZER INC-2010160814

PATIENT
  Age: 81 Year
  Sex: Male

DRUGS (1)
  1. LYRICA [Suspect]
     Indication: SPINAL COLUMN STENOSIS
     Dosage: 25 MG, 1X/DAY
     Route: 048
     Dates: start: 20101127

REACTIONS (3)
  - DIZZINESS [None]
  - DYSSTASIA [None]
  - SOMNOLENCE [None]
